FAERS Safety Report 25704994 (Version 2)
Quarter: 2025Q3

REPORT INFORMATION
  Report Type: Spontaneous
  Country: EU (occurrence: EU)
  Receive Date: 20250820
  Receipt Date: 20250828
  Transmission Date: 20251020
  Serious: Yes (Other)
  Sender: AUROBINDO
  Company Number: EU-AUROBINDO-AUR-APL-2025-041875

PATIENT
  Sex: Female

DRUGS (1)
  1. FLUOXETINE [Suspect]
     Active Substance: FLUOXETINE HYDROCHLORIDE
     Indication: Product used for unknown indication
     Route: 065

REACTIONS (12)
  - Suicidal ideation [Recovering/Resolving]
  - Loss of consciousness [Recovering/Resolving]
  - Product substitution issue [Recovering/Resolving]
  - Illusion [Recovering/Resolving]
  - Depression [Recovering/Resolving]
  - Abnormal behaviour [Recovering/Resolving]
  - Disturbance in attention [Recovering/Resolving]
  - Purpura [Recovered/Resolved]
  - Photosensitivity reaction [Recovering/Resolving]
  - Accident [Recovering/Resolving]
  - Electric shock sensation [Recovering/Resolving]
  - Hypoaesthesia [Recovering/Resolving]
